FAERS Safety Report 8133959-X (Version None)
Quarter: 2012Q1

REPORT INFORMATION
  Report Type: 
  Country: None (occurrence: None)
  Receive Date: 20120213
  Receipt Date: 20120207
  Transmission Date: 20120608
  Serious: Yes (Life-Threatening, Hospitalization, Other)
  Sender: FDA-Public Use
  Company Number: US-ASTRAZENECA-2012SE00871

PATIENT
  Age: 54 Year
  Sex: Female
  Weight: 72.6 kg

DRUGS (7)
  1. SEROQUEL XR [Suspect]
     Indication: PANIC ATTACK
     Route: 048
     Dates: end: 20111230
  2. SEROQUEL XR [Suspect]
     Indication: MAJOR DEPRESSION
     Route: 048
     Dates: end: 20111230
  3. DIABEM [Concomitant]
     Indication: HYPERTENSION
  4. CYMBALTA [Concomitant]
  5. HORMONE PILL [Concomitant]
  6. SEROQUEL XR [Suspect]
     Indication: INSOMNIA
     Route: 048
     Dates: end: 20111230
  7. SEROQUEL XR [Suspect]
     Indication: ANXIETY
     Route: 048
     Dates: end: 20111230

REACTIONS (4)
  - OFF LABEL USE [None]
  - DRUG DOSE OMISSION [None]
  - SUICIDE ATTEMPT [None]
  - INSOMNIA [None]
